FAERS Safety Report 5662418-9 (Version None)
Quarter: 2008Q1

REPORT INFORMATION
  Report Type: 
  Country: None (occurrence: None)
  Receive Date: 20080313
  Receipt Date: 20080305
  Transmission Date: 20080703
  Serious: No
  Sender: FDA-Public Use
  Company Number: US-JNJFOC-20080106969

PATIENT
  Sex: Female
  Weight: 75.75 kg

DRUGS (4)
  1. INVEGA [Suspect]
     Indication: PSYCHOTIC DISORDER
     Route: 048
  2. VALIUM [Concomitant]
     Indication: ANXIETY
  3. PROPRANOLOL [Concomitant]
     Indication: DYSKINESIA
  4. COGENTIN [Concomitant]
     Indication: TARDIVE DYSKINESIA

REACTIONS (2)
  - DYSKINESIA [None]
  - JOINT STIFFNESS [None]
